FAERS Safety Report 11539813 (Version 1)
Quarter: 2015Q3

REPORT INFORMATION
  Report Type: Spontaneous
  Country: US (occurrence: None)
  Receive Date: 20150922
  Receipt Date: 20150922
  Transmission Date: 20151125
  Serious: Yes (Other)
  Sender: FDA-Public Use
  Company Number: None

PATIENT
  Age: 25 Year
  Sex: Female

DRUGS (2)
  1. CLONIDINE TRANSDERMAL SYSTEM [Suspect]
     Active Substance: CLONIDINE
     Indication: INVESTIGATION
     Dosage: 1 PATCH
     Route: 062
     Dates: start: 20150720
  2. CATAPRES-TTS [Suspect]
     Active Substance: CLONIDINE
     Indication: INVESTIGATION
     Dosage: 1 PATCH
     Route: 062
     Dates: start: 20150817

REACTIONS (3)
  - Abortion spontaneous [None]
  - Maternal exposure during pregnancy [None]
  - Pregnancy [None]

NARRATIVE: CASE EVENT DATE: 20150831
